FAERS Safety Report 18274016 (Version 15)
Quarter: 2025Q3

REPORT INFORMATION
  Report Type: Report from Study
  Country: US (occurrence: US)
  Receive Date: 20200916
  Receipt Date: 20250905
  Transmission Date: 20251020
  Serious: Yes (Other)
  Sender: TAKEDA
  Company Number: US-SHIRE-US202030045

PATIENT
  Age: 46 Year
  Sex: Female
  Weight: 111 kg

DRUGS (41)
  1. HUMAN IMMUNOGLOBULIN G [Suspect]
     Active Substance: HUMAN IMMUNOGLOBULIN G
     Indication: IgG deficiency
  2. HUMAN IMMUNOGLOBULIN G [Suspect]
     Active Substance: HUMAN IMMUNOGLOBULIN G
  3. HUMAN IMMUNOGLOBULIN G [Suspect]
     Active Substance: HUMAN IMMUNOGLOBULIN G
     Dosage: 35 GRAM, Q2WEEKS
  4. HUMAN IMMUNOGLOBULIN G [Suspect]
     Active Substance: HUMAN IMMUNOGLOBULIN G
  5. HUMAN IMMUNOGLOBULIN G [Suspect]
     Active Substance: HUMAN IMMUNOGLOBULIN G
     Dosage: 70 GRAM, Q4WEEKS
  6. HUMAN IMMUNOGLOBULIN G [Suspect]
     Active Substance: HUMAN IMMUNOGLOBULIN G
     Dosage: 60 GRAM, Q4WEEKS
  7. COVID-19 VACCINE NOS [Suspect]
     Active Substance: COVID-19 VACCINE
     Indication: COVID-19 immunisation
  8. ZOFRAN [Suspect]
     Active Substance: ONDANSETRON HYDROCHLORIDE
     Indication: Product used for unknown indication
  9. DIPHENHYDRAMINE [Concomitant]
     Active Substance: DIPHENHYDRAMINE
     Indication: Product used for unknown indication
  10. FEXOFENADINE HYDROCHLORIDE [Concomitant]
     Active Substance: FEXOFENADINE HYDROCHLORIDE
  11. ACETAMINOPHEN [Concomitant]
     Active Substance: ACETAMINOPHEN
     Indication: Product used for unknown indication
  12. SODIUM CHLORIDE [Concomitant]
     Active Substance: SODIUM CHLORIDE
  13. ONDANSETRON [Concomitant]
     Active Substance: ONDANSETRON
  14. EPINEPHRINE [Concomitant]
     Active Substance: EPINEPHRINE
     Indication: Product used for unknown indication
  15. AZITHROMYCIN [Concomitant]
     Active Substance: AZITHROMYCIN
     Indication: Product used for unknown indication
  16. AMOXICILLIN [Concomitant]
     Active Substance: AMOXICILLIN
     Indication: Product used for unknown indication
  17. PERCOCET [Concomitant]
     Active Substance: ACETAMINOPHEN\OXYCODONE HYDROCHLORIDE
  18. NABUMETONE [Concomitant]
     Active Substance: NABUMETONE
  19. MAXALT [Concomitant]
     Active Substance: RIZATRIPTAN BENZOATE
     Indication: Product used for unknown indication
  20. FOCALIN [Concomitant]
     Active Substance: DEXMETHYLPHENIDATE HYDROCHLORIDE
  21. ARMOUR THYROID [Concomitant]
     Active Substance: THYROID, PORCINE
  22. SENNA [Concomitant]
     Active Substance: SENNOSIDES
  23. MAGNESIUM [Concomitant]
     Active Substance: MAGNESIUM
  24. VALTREX [Concomitant]
     Active Substance: VALACYCLOVIR HYDROCHLORIDE
  25. LEVOTHYROXINE [Concomitant]
     Active Substance: LEVOTHYROXINE
     Indication: Product used for unknown indication
  26. SYNTHROID [Concomitant]
     Active Substance: LEVOTHYROXINE SODIUM
  27. SYMBICORT [Concomitant]
     Active Substance: BUDESONIDE\FORMOTEROL FUMARATE DIHYDRATE
  28. ALBUTEROL SULFATE [Concomitant]
     Active Substance: ALBUTEROL SULFATE
  29. ADDERALL [Concomitant]
     Active Substance: AMPHETAMINE ASPARTATE\AMPHETAMINE SULFATE\DEXTROAMPHETAMINE SACCHARATE\DEXTROAMPHETAMINE SULFATE
  30. LOTEPREDNOL ETABONATE [Concomitant]
     Active Substance: LOTEPREDNOL ETABONATE
  31. PFIZER-BIONTECH COVID-19 VACCINE [Concomitant]
     Active Substance: TOZINAMERAN
  32. HYDROXYZINE HYDROCHLORIDE [Concomitant]
     Active Substance: HYDROXYZINE HYDROCHLORIDE
  33. CREON [Concomitant]
     Active Substance: PANCRELIPASE AMYLASE\PANCRELIPASE LIPASE\PANCRELIPASE PROTEASE
  34. XANAX [Concomitant]
     Active Substance: ALPRAZOLAM
  35. DIPHENHYDRAMINE HYDROCHLORIDE [Concomitant]
     Active Substance: DIPHENHYDRAMINE HYDROCHLORIDE
  36. ANASTROZOLE [Concomitant]
     Active Substance: ANASTROZOLE
  37. MOUNJARO [Concomitant]
     Active Substance: TIRZEPATIDE
  38. LIOTHYRONINE SODIUM [Concomitant]
     Active Substance: LIOTHYRONINE SODIUM
  39. PROGESTERONE [Concomitant]
     Active Substance: PROGESTERONE
  40. KETOTIFEN FUMARATE [Concomitant]
     Active Substance: KETOTIFEN FUMARATE
  41. NALTREXONE HYDROCHLORIDE [Concomitant]
     Active Substance: NALTREXONE HYDROCHLORIDE

REACTIONS (52)
  - Abortion spontaneous [Recovered/Resolved]
  - Upper respiratory tract congestion [Unknown]
  - Peripheral swelling [Unknown]
  - Poor venous access [Unknown]
  - Muscle tightness [Unknown]
  - Infusion related reaction [Unknown]
  - Sleep apnoea syndrome [Unknown]
  - Tooth abscess [Unknown]
  - Toothache [Recovered/Resolved]
  - Weight fluctuation [Unknown]
  - Fall [Unknown]
  - Bronchitis [Unknown]
  - Respiratory tract infection [Unknown]
  - Productive cough [Unknown]
  - Pharyngitis [Unknown]
  - Infection [Unknown]
  - Sinus congestion [Unknown]
  - Skin exfoliation [Unknown]
  - Ear discomfort [Unknown]
  - Ear swelling [Unknown]
  - Episcleritis [Unknown]
  - Nasopharyngitis [Unknown]
  - COVID-19 [Unknown]
  - Respiratory tract infection viral [Not Recovered/Not Resolved]
  - Ear congestion [Unknown]
  - Body height decreased [Unknown]
  - Pregnancy [Recovered/Resolved]
  - Sinusitis [Unknown]
  - Infusion site discharge [Unknown]
  - Asthma [Unknown]
  - Throat tightness [Recovered/Resolved]
  - Infusion site extravasation [Unknown]
  - Cold sweat [Unknown]
  - Flushing [Unknown]
  - Erythema [Unknown]
  - Anxiety [Recovered/Resolved]
  - Oedema peripheral [Unknown]
  - Cough [Recovered/Resolved]
  - Malaise [Unknown]
  - Dyspnoea [Recovered/Resolved]
  - Chest discomfort [Unknown]
  - Infusion site pain [Unknown]
  - Diarrhoea [Unknown]
  - Vomiting [Unknown]
  - Pyrexia [Recovered/Resolved]
  - Abdominal pain [Unknown]
  - Pruritus [Unknown]
  - Nausea [Recovered/Resolved]
  - Urticaria [Unknown]
  - Headache [Unknown]
  - Fatigue [Unknown]
  - Dizziness [Recovered/Resolved]

NARRATIVE: CASE EVENT DATE: 20220912
